FAERS Safety Report 9374255 (Version 1)
Quarter: 2013Q2

REPORT INFORMATION
  Report Type: Spontaneous
  Country: US (occurrence: US)
  Receive Date: 20130628
  Receipt Date: 20130628
  Transmission Date: 20140414
  Serious: No
  Sender: FDA-Public Use
  Company Number: US-PFIZER INC-2011066309

PATIENT
  Age: 51 Year
  Sex: Female
  Weight: 72.56 kg

DRUGS (6)
  1. CHANTIX [Suspect]
     Indication: SMOKING CESSATION THERAPY
     Dosage: UNK
     Route: 048
     Dates: start: 20090401
  2. HYDROCODONE [Concomitant]
     Dosage: UNK
  3. SYNTHROID [Concomitant]
     Dosage: UNK
  4. GABAPENTIN [Concomitant]
     Dosage: UNK
  5. PROZAC [Concomitant]
     Dosage: UNK
  6. XANAX [Concomitant]
     Dosage: UNK

REACTIONS (1)
  - Weight increased [Recovering/Resolving]
